FAERS Safety Report 13022550 (Version 3)
Quarter: 2017Q1

REPORT INFORMATION
  Report Type: Spontaneous
  Country: IT (occurrence: IT)
  Receive Date: 20161213
  Receipt Date: 20170222
  Transmission Date: 20170428
  Serious: Yes (Hospitalization)
  Sender: FDA-Public Use
  Company Number: IT-MEDA-2016120024

PATIENT
  Age: 81 Year
  Sex: Female

DRUGS (7)
  1. AMLODIPIN [Concomitant]
     Active Substance: AMLODIPINE BESYLATE
  2. ZOLPIDEM [Suspect]
     Active Substance: ZOLPIDEM\ZOLPIDEM TARTRATE
     Route: 048
     Dates: start: 20160522, end: 20160522
  3. LEXOTAN 2.5 MG/ML [Concomitant]
     Active Substance: BROMAZEPAM
  4. TELMISARTAN. [Concomitant]
     Active Substance: TELMISARTAN
  5. ATORVASTATIN [Concomitant]
     Active Substance: ATORVASTATIN
  6. LANSOX 15 MG [Concomitant]
  7. CLOPIDOGREL [Concomitant]
     Active Substance: CLOPIDOGREL BISULFATE

REACTIONS (6)
  - Drop attacks [Recovering/Resolving]
  - Agitation [Recovering/Resolving]
  - Disorientation [Recovering/Resolving]
  - Overdose [Recovering/Resolving]
  - Confusional state [Recovering/Resolving]
  - Head injury [Recovering/Resolving]

NARRATIVE: CASE EVENT DATE: 20160522
